FAERS Safety Report 6908172-1 (Version None)
Quarter: 2010Q3

REPORT INFORMATION
  Report Type: 
  Country: None (occurrence: None)
  Receive Date: 20100716
  Receipt Date: 20090825
  Transmission Date: 20110219
  Serious: Yes (Hospitalization, Other)
  Sender: FDA-Public Use
  Company Number: 2009242060

PATIENT
  Age: 59 Year
  Sex: Female

DRUGS (6)
  1. CELEBREX [Suspect]
     Indication: BACK PAIN
     Dosage: 200 MG, 1X/DAY, ORAL
     Route: 048
     Dates: start: 20090601, end: 20090601
  2. TRICOR [Concomitant]
  3. WELCHOL [Concomitant]
  4. TOPROL-XL [Concomitant]
  5. MULTIVITAMINS (ASCORBIC ACID, ERGOCALCIFEROL, FOLIC ACID, NICOTINAMIDE [Concomitant]
  6. CALCIUM (CALCIUM) [Concomitant]

REACTIONS (3)
  - DYSPNOEA [None]
  - RASH [None]
  - URTICARIA [None]
